FAERS Safety Report 20419556 (Version 2)
Quarter: 2022Q1

REPORT INFORMATION
  Report Type: Spontaneous
  Country: PT (occurrence: PT)
  Receive Date: 20220203
  Receipt Date: 20220215
  Transmission Date: 20220423
  Serious: Yes (Life-Threatening, Hospitalization)
  Sender: FDA-Public Use
  Company Number: PT-TEVA-2022-PT-2003267

PATIENT
  Age: 17 Year
  Sex: Male

DRUGS (4)
  1. ALLOPURINOL [Interacting]
     Active Substance: ALLOPURINOL
     Indication: Giant cell myocarditis
     Dosage: STARTED RECEIVED ALLOPURINOL 3 MONTHS PRIOR TO THE PRESENTATION
     Route: 065
  2. CYCLOSPORINE [Interacting]
     Active Substance: CYCLOSPORINE
     Indication: Giant cell myocarditis
     Route: 065
  3. AZATHIOPRINE [Interacting]
     Active Substance: AZATHIOPRINE
     Indication: Giant cell myocarditis
     Dosage: DRUG WITHDRAWAN ON DAY 2 OF ADMISSION
     Route: 065
  4. PREDNISOLONE [Concomitant]
     Active Substance: PREDNISOLONE
     Indication: Giant cell myocarditis
     Route: 065

REACTIONS (2)
  - Myelosuppression [Recovered/Resolved]
  - Drug interaction [Unknown]
